FAERS Safety Report 5652212-7 (Version None)
Quarter: 2008Q1

REPORT INFORMATION
  Report Type: 
  Country: None (occurrence: None)
  Receive Date: 20080304
  Receipt Date: 20080218
  Transmission Date: 20080703
  Serious: Yes (Life-Threatening, Hospitalization, Other)
  Sender: FDA-Public Use
  Company Number: DSM-2008-00210

PATIENT
  Age: 77 Year
  Sex: Male

DRUGS (4)
  1. IXIA (OLMESARTAN MEDOXOMIL) (40 MILLIGRAM, TABLET) (OLMESARTAN MEDOXOM [Suspect]
     Indication: HYPERTENSION
     Dosage: 40 MG (40 MG, 1 IN 1 D), ORAL
     Route: 048
  2. MANIDRON (VERAPAMIL HYDROCHLORIDE) (240 MILLIGRAM) (VERAPAMIL HYDROCHL [Suspect]
     Indication: HYPERTENSION
     Dosage: 40 MG (40 MG, 1 IN 1 D), ORAL
     Route: 048
     Dates: start: 20060101, end: 20060604
  3. DOXAZOSINA CINFA (DOXAZOSIN MESILATE) (4 MILLIGRAM) (DOXAZOSIN MESILAT [Suspect]
     Dosage: 4 MG (4 MG, 1 IN 1 D), ORAL
     Route: 048
  4. COROPRES (CARVEDILOL) (50 MILLIGRAM, TABLET) (CARVEDILOL) [Suspect]
     Dosage: 100 MG (50 MG, 2 IN 1 D), ORAL
     Route: 048
     Dates: start: 20060101, end: 20060604

REACTIONS (4)
  - BRADYCARDIA [None]
  - DRUG INTERACTION [None]
  - HYPOTENSION [None]
  - SHOCK [None]
